FAERS Safety Report 9021616 (Version 1)
Quarter: 2013Q1

REPORT INFORMATION
  Report Type: Spontaneous
  Country: US (occurrence: US)
  Receive Date: 20130119
  Receipt Date: 20130119
  Transmission Date: 20140127
  Serious: No
  Sender: FDA-Public Use
  Company Number: US-ALLERGAN-1200049US

PATIENT
  Age: 50 None
  Sex: Female

DRUGS (5)
  1. BOTOX COSMETIC [Suspect]
     Indication: SKIN WRINKLING
     Dosage: 5 UNITS, SINGLE
     Route: 030
     Dates: start: 20111229, end: 20111229
  2. BOTOX COSMETIC [Suspect]
     Dosage: 14 UNITS, SINGLE
     Route: 030
     Dates: start: 20111202, end: 20111202
  3. BOTOX COSMETIC [Suspect]
     Dosage: 10 UNITS, SINGLE
     Route: 030
     Dates: start: 20111202, end: 20111202
  4. BOTOX COSMETIC [Suspect]
     Dosage: 35 UNITS, SINGLE
     Route: 030
     Dates: start: 20111202, end: 20111202
  5. JUVEDERM [Suspect]
     Indication: PRODUCT USED FOR UNKNOWN INDICATION
     Dosage: 0.8 ML, SINGLE
     Route: 030
     Dates: start: 20111209, end: 20111209

REACTIONS (4)
  - Swelling face [Not Recovered/Not Resolved]
  - Swelling face [Not Recovered/Not Resolved]
  - Eyelid ptosis [Recovering/Resolving]
  - Therapeutic response decreased [Unknown]
